FAERS Safety Report 6274091-X (Version None)
Quarter: 2009Q3

REPORT INFORMATION
  Report Type: 
  Country: None (occurrence: None)
  Receive Date: 20090720
  Receipt Date: 20090707
  Transmission Date: 20100115
  Serious: Yes (Hospitalization)
  Sender: FDA-Public Use
  Company Number: PHHY2009GB27970

PATIENT
  Sex: Male

DRUGS (1)
  1. CLOZARIL [Suspect]
     Indication: SCHIZOPHRENIA
     Dosage: UNK
     Route: 048
     Dates: start: 19950203

REACTIONS (5)
  - ACCIDENT [None]
  - CHEST INJURY [None]
  - INJURY [None]
  - PELVIC ORGAN INJURY [None]
  - TRAUMATIC LUNG INJURY [None]
